FAERS Safety Report 6199398-6 (Version None)
Quarter: 2009Q2

REPORT INFORMATION
  Report Type: 
  Country: None (occurrence: None)
  Receive Date: 20090519
  Receipt Date: 20090505
  Transmission Date: 20091009
  Serious: Yes (Hospitalization)
  Sender: FDA-Public Use
  Company Number: 2009001404

PATIENT
  Age: 51 Year
  Sex: Female
  Weight: 27.2 kg

DRUGS (4)
  1. ERLOTINIB               (TABLET)          (ERLOTINIB) [Suspect]
     Indication: NON-SMALL CELL LUNG CANCER
     Dosage: 150 MG, QD, ORAL
     Route: 048
     Dates: start: 20080225
  2. BEVACIZUMAB                    (INJECTION FOR INFUSION) [Suspect]
     Indication: NON-SMALL CELL LUNG CANCER
     Dosage: 894, Q3W, INTRAVENOUS
     Route: 042
     Dates: start: 20071204
  3. GEMCITABINE [Suspect]
     Indication: NON-SMALL CELL LUNG CANCER
     Dosage: 1962 MG , Q3W, INTRAVENOUS
     Route: 042
     Dates: start: 20071204
  4. CISPLATIN [Suspect]
     Dosage: 126 MG, Q3W, INTRAVENOUS
     Route: 042
     Dates: start: 20071204

REACTIONS (2)
  - AMBLYOPIA [None]
  - CATARACT [None]
